FAERS Safety Report 7030991-4 (Version None)
Quarter: 2010Q4

REPORT INFORMATION
  Report Type: 
  Country: None (occurrence: None)
  Receive Date: 20101006
  Receipt Date: 20100506
  Transmission Date: 20110411
  Serious: No
  Sender: FDA-Public Use
  Company Number: US-BRISTOL-MYERS SQUIBB COMPANY-15083405

PATIENT
  Age: 86 Year
  Sex: Female
  Weight: 58 kg

DRUGS (4)
  1. KENALOG-40 [Suspect]
     Indication: BURSITIS
     Route: 014
     Dates: start: 20100427
  2. AVAPRO [Concomitant]
  3. DIGOXIN [Concomitant]
  4. SIMVASTATIN [Concomitant]

REACTIONS (2)
  - EXPIRED DRUG ADMINISTERED [None]
  - NO ADVERSE EVENT [None]
